FAERS Safety Report 25774133 (Version 1)
Quarter: 2025Q3

REPORT INFORMATION
  Report Type: Spontaneous
  Country: GB (occurrence: GB)
  Receive Date: 20250908
  Receipt Date: 20250908
  Transmission Date: 20251021
  Serious: Yes (Other)
  Sender: TORRENT PHARMA INC.
  Company Number: None

PATIENT
  Age: 39 Year
  Sex: Male
  Weight: 87 kg

DRUGS (1)
  1. CLOPIDOGREL [Suspect]
     Active Substance: CLOPIDOGREL BISULFATE
     Indication: Arterial occlusive disease
     Dosage: 300MG DAILY
     Route: 065
     Dates: end: 20250101

REACTIONS (1)
  - Haematospermia [Recovered/Resolved]

NARRATIVE: CASE EVENT DATE: 20240801
